FAERS Safety Report 9829707 (Version 1)
Quarter: 2014Q1

REPORT INFORMATION
  Report Type: Spontaneous
  Country: SA (occurrence: SA)
  Receive Date: 20140120
  Receipt Date: 20140120
  Transmission Date: 20141002
  Serious: Yes (Other)
  Sender: FDA-Public Use
  Company Number: SA-ALEXION-A201304815

PATIENT
  Age: 5 Year
  Sex: Female

DRUGS (5)
  1. SOLIRIS 300MG [Suspect]
     Indication: HAEMOLYTIC URAEMIC SYNDROME
     Dosage: UNK, Q2W
     Route: 042
  2. LABETALOL [Concomitant]
     Indication: HYPERTENSION
     Dosage: UNK
  3. FUROSEMIDE [Concomitant]
     Indication: HYPERTENSION
     Dosage: UNK
  4. FLUTICASONE [Concomitant]
     Indication: ASTHMA
     Dosage: UNK
  5. ALBUTEROL [Concomitant]
     Indication: ASTHMA
     Dosage: UNK,

REACTIONS (1)
  - Herpes simplex pharyngitis [Recovered/Resolved]
